FAERS Safety Report 19641791 (Version 2)
Quarter: 2022Q1

REPORT INFORMATION
  Report Type: Spontaneous
  Country: US (occurrence: US)
  Receive Date: 20210731
  Receipt Date: 20220104
  Transmission Date: 20220423
  Serious: Yes (Hospitalization, Other)
  Sender: FDA-Public Use
  Company Number: US-DRREDDYS-LIT/USA/21/0138299

PATIENT
  Age: 52 Year
  Sex: Male

DRUGS (12)
  1. VALGANCICLOVIR [Suspect]
     Active Substance: VALGANCICLOVIR
     Indication: Antiviral prophylaxis
  2. VALGANCICLOVIR [Suspect]
     Active Substance: VALGANCICLOVIR
     Dosage: HIGH DOSE-450MG DAILY.
  3. VALGANCICLOVIR [Suspect]
     Active Substance: VALGANCICLOVIR
     Dosage: TREATMENT-450MG EVERY OTHER DAY
  4. VALGANCICLOVIR [Suspect]
     Active Substance: VALGANCICLOVIR
     Dosage: PROPHYLAXIS-450MG EVERY MONDAY/THURSDAY
  5. TACROLIMUS [Suspect]
     Active Substance: TACROLIMUS
     Indication: Immunosuppressant drug therapy
     Dosage: DOSE: 9-11 NG/ML FOR 0-3 MONTHS
  6. TACROLIMUS [Suspect]
     Active Substance: TACROLIMUS
     Dosage: DOSE: 7-9 NG/ML FOR 3-6 MONTHS
  7. TACROLIMUS [Suspect]
     Active Substance: TACROLIMUS
     Dosage: DOSE: 6-8 NG/ML AFTER 6 MONTHS
  8. MYCOPHENOLIC ACID [Suspect]
     Active Substance: MYCOPHENOLIC ACID
     Indication: Immunosuppressant drug therapy
  9. MYCOPHENOLIC ACID [Suspect]
     Active Substance: MYCOPHENOLIC ACID
     Dosage: DOSE HALVED
  10. PREDNISONE [Suspect]
     Active Substance: PREDNISONE
     Indication: Immunosuppressant drug therapy
  11. PREDNISONE [Suspect]
     Active Substance: PREDNISONE
     Dosage: TAPERED AT 3 MONTHS
  12. THYMOCYTE IMMUNE GLOBULIN NOS [Suspect]
     Active Substance: THYMOCYTE IMMUNE GLOBULIN NOS
     Indication: Immunosuppressant drug therapy

REACTIONS (6)
  - Gene mutation [Unknown]
  - Cytomegalovirus viraemia [Recovered/Resolved]
  - Pneumonia cytomegaloviral [Recovered/Resolved]
  - Leukopenia [Recovered/Resolved]
  - Pathogen resistance [Recovered/Resolved]
  - Renal impairment [Unknown]
